FAERS Safety Report 19245662 (Version 16)
Quarter: 2022Q3

REPORT INFORMATION
  Report Type: Spontaneous
  Country: CA (occurrence: CA)
  Receive Date: 20210512
  Receipt Date: 20220930
  Transmission Date: 20221027
  Serious: Yes (Other)
  Sender: FDA-Public Use
  Company Number: CA-CELLTRION INC.-2020CA035075

PATIENT

DRUGS (19)
  1. INFLECTRA [Suspect]
     Active Substance: INFLIXIMAB-DYYB
     Indication: Colitis ulcerative
     Dosage: 5 MG/KG (400 MG), 0, 2, 6 THEN EVERY 8 WEEKS
     Route: 042
     Dates: start: 20200813
  2. INFLECTRA [Suspect]
     Active Substance: INFLIXIMAB-DYYB
     Dosage: 5 MG/KG (400 MG), 0, 2, 6 THEN EVERY 8 WEEKS
     Route: 042
     Dates: start: 20200813, end: 202011
  3. INFLECTRA [Suspect]
     Active Substance: INFLIXIMAB-DYYB
     Dosage: 5 MG/KG (400 MG), 0, 2, 6 THEN EVERY 8 WEEKS
     Route: 042
     Dates: start: 20200827
  4. INFLECTRA [Suspect]
     Active Substance: INFLIXIMAB-DYYB
     Dosage: 5 MG/KG (400 MG), 0, 2, 6 THEN EVERY 8 WEEKS
     Route: 042
     Dates: start: 20201117
  5. INFLECTRA [Suspect]
     Active Substance: INFLIXIMAB-DYYB
     Dosage: 400 MG  (5 MG/KG ), 0, 2, 6 THEN EVERY 8 WEEKS (RE-INDUCTION AT WEEK 0, 2 AND 6MAINTENANCE Q 8)
     Route: 042
     Dates: start: 20210501
  6. INFLECTRA [Suspect]
     Active Substance: INFLIXIMAB-DYYB
     Dosage: 400 MG  (5 MG/KG ), 0, 2, 6 THEN EVERY 8 WEEKS (RE-INDUCTION AT WEEK 0, 2 AND 6MAINTENANCE Q 8)
     Route: 042
     Dates: start: 20210501, end: 20211001
  7. INFLECTRA [Suspect]
     Active Substance: INFLIXIMAB-DYYB
     Dosage: 5 MG/KG (400 MG), 0, 2, 6 THEN EVERY 8 WEEKS
     Route: 042
     Dates: start: 20210514
  8. INFLECTRA [Suspect]
     Active Substance: INFLIXIMAB-DYYB
     Dosage: 5 MG/KG (400 MG), 0, 2, 6 THEN EVERY 8 WEEKS
     Route: 042
     Dates: start: 20210611
  9. INFLECTRA [Suspect]
     Active Substance: INFLIXIMAB-DYYB
     Dosage: 5 MG/KG (400 MG), 0, 2, 6 THEN EVERY 8 WEEKS
     Route: 042
     Dates: start: 20210806
  10. INFLECTRA [Suspect]
     Active Substance: INFLIXIMAB-DYYB
     Dosage: 400 MG (5 MG/KG, 0, 2, 6 THEN EVERY 8 WEEKS)
     Route: 042
     Dates: start: 20211001
  11. INFLECTRA [Suspect]
     Active Substance: INFLIXIMAB-DYYB
     Dosage: 400 MG, RE-INDUCTION AT WEEK 0, 2 AND 6MAINTENANCE Q 8 WEEKS
     Route: 042
     Dates: start: 20211001
  12. INFLECTRA [Suspect]
     Active Substance: INFLIXIMAB-DYYB
     Dosage: 10 MG/KG, EVERY 6 WEEKS
     Route: 042
     Dates: start: 20211112
  13. INFLECTRA [Suspect]
     Active Substance: INFLIXIMAB-DYYB
     Dosage: 10 MG/KG, EVERY 6 WEEKS
     Route: 042
     Dates: start: 20211223
  14. INFLECTRA [Suspect]
     Active Substance: INFLIXIMAB-DYYB
     Dosage: 10 MG/KG, EVERY 6 WEEKS
     Route: 042
     Dates: start: 20220224
  15. INFLECTRA [Suspect]
     Active Substance: INFLIXIMAB-DYYB
     Dosage: 10 MG/KG EVERY 6 WEEKS
     Route: 042
     Dates: start: 20220404
  16. INFLECTRA [Suspect]
     Active Substance: INFLIXIMAB-DYYB
     Dosage: 10 MG/KG EVERY 6 WEEKS
     Route: 042
     Dates: start: 20220516
  17. INFLECTRA [Suspect]
     Active Substance: INFLIXIMAB-DYYB
     Dosage: 10 MG/KG EVERY 6 WEEKS
     Route: 042
     Dates: start: 20220627
  18. INFLECTRA [Suspect]
     Active Substance: INFLIXIMAB-DYYB
     Dosage: 10 MG/KG EVERY 6 WEEKS
     Route: 042
     Dates: start: 20220919
  19. IMURAN [Concomitant]
     Active Substance: AZATHIOPRINE
     Dosage: 1 DF, DOSAGE UNKNOWN
     Route: 065
     Dates: start: 20200711

REACTIONS (15)
  - Pruritus [Not Recovered/Not Resolved]
  - Burning sensation [Unknown]
  - Drug level below therapeutic [Unknown]
  - Off label use [Unknown]
  - Inappropriate schedule of product administration [Unknown]
  - Product dose omission issue [Unknown]
  - Chest pain [Recovered/Resolved]
  - Condition aggravated [Recovering/Resolving]
  - Weight increased [Unknown]
  - Faecal volume decreased [Not Recovered/Not Resolved]
  - Suspected COVID-19 [Unknown]
  - Cough [Not Recovered/Not Resolved]
  - Headache [Not Recovered/Not Resolved]
  - COVID-19 [Recovered/Resolved]
  - Illness [Recovered/Resolved]

NARRATIVE: CASE EVENT DATE: 20210501
